FAERS Safety Report 6967718-8 (Version None)
Quarter: 2010Q3

REPORT INFORMATION
  Report Type: 
  Country: None (occurrence: None)
  Receive Date: 20100907
  Receipt Date: 20100831
  Transmission Date: 20110219
  Serious: Yes (Hospitalization)
  Sender: FDA-Public Use
  Company Number: IT-BAYER-201037631GPV

PATIENT
  Age: 80 Year
  Sex: Male

DRUGS (6)
  1. ASPIRIN [Suspect]
     Indication: ACUTE CORONARY SYNDROME
     Dosage: TOTAL DAILY DOSE: 100 MG  UNIT DOSE: 100 MG
     Route: 048
     Dates: start: 20100823, end: 20100826
  2. INTEGRILIN [Suspect]
     Indication: ACUTE CORONARY SYNDROME
     Dosage: TOTAL DAILY DOSE: 184 MG  UNIT DOSE: 184 MG
     Route: 042
     Dates: start: 20100823, end: 20100824
  3. PLAVIX [Suspect]
     Indication: ACUTE CORONARY SYNDROME
     Route: 048
     Dates: start: 20100823, end: 20100826
  4. PANTOPRAZOLE [Concomitant]
     Route: 042
  5. IVABRADINE [Concomitant]
     Route: 048
  6. ATORVASTATIN [Concomitant]
     Route: 048

REACTIONS (2)
  - PYREXIA [None]
  - THROMBOCYTOPENIA [None]
